FAERS Safety Report 17957322 (Version 1)
Quarter: 2020Q2

REPORT INFORMATION
  Report Type: Report from Study
  Country: GB (occurrence: GB)
  Receive Date: 20200629
  Receipt Date: 20200629
  Transmission Date: 20200714
  Serious: Yes (Hospitalization)
  Sender: FDA-Public Use
  Company Number: GB-ROCHE-2626348

PATIENT
  Age: 77 Year
  Sex: Female

DRUGS (8)
  1. BUPRENORPHINE. [Concomitant]
     Active Substance: BUPRENORPHINE
     Dosage: CUTANEOUS PATCH, 1 HOUR
     Route: 062
     Dates: start: 20200101
  2. OMEPRAZOLE. [Concomitant]
     Active Substance: OMEPRAZOLE
     Dosage: 1 DAY
     Route: 048
     Dates: start: 20200101
  3. RIVAROXABAN [Concomitant]
     Active Substance: RIVAROXABAN
     Route: 048
     Dates: start: 20200528
  4. TOCILIZUMAB. [Suspect]
     Active Substance: TOCILIZUMAB
     Indication: PNEUMONIA VIRAL
     Dosage: 1 DAY
     Route: 042
     Dates: start: 20200513, end: 20200514
  5. HYDROXYCHLOROQUINE SULFATE. [Concomitant]
     Active Substance: HYDROXYCHLOROQUINE SULFATE
     Dosage: 12 HOUR
     Route: 048
     Dates: start: 20200513, end: 20200522
  6. VENLAFAXINE [Concomitant]
     Active Substance: VENLAFAXINE HYDROCHLORIDE
     Dosage: 1DAY
     Route: 048
     Dates: start: 20200101
  7. COLECALCIFEROL [Concomitant]
     Active Substance: CHOLECALCIFEROL
     Dosage: 1 DAY
     Route: 048
     Dates: start: 20200101
  8. ATORVASTATIN CALCIUM. [Concomitant]
     Active Substance: ATORVASTATIN CALCIUM
     Dosage: 1 DAY
     Route: 048
     Dates: start: 20200101

REACTIONS (1)
  - Otitis externa [Recovered/Resolved]

NARRATIVE: CASE EVENT DATE: 20200607
